FAERS Safety Report 15800889 (Version 1)
Quarter: 2019Q1

REPORT INFORMATION
  Report Type: Spontaneous
  Country: US (occurrence: US)
  Receive Date: 20190109
  Receipt Date: 20190109
  Transmission Date: 20190417
  Serious: No
  Sender: FDA-Public Use
  Company Number: US-ADAAP-201800199

PATIENT
  Age: 40 Year
  Sex: Female

DRUGS (1)
  1. LUTATHERA [Suspect]
     Active Substance: LUTETIUM OXODOTREOTIDE LU-177
     Indication: CARCINOID TUMOUR OF THE GASTROINTESTINAL TRACT
     Route: 065

REACTIONS (2)
  - Blood count abnormal [Unknown]
  - Off label use [Unknown]
